FAERS Safety Report 15583515 (Version 1)
Quarter: 2018Q4

REPORT INFORMATION
  Report Type: Spontaneous
  Country: US (occurrence: US)
  Receive Date: 20181105
  Receipt Date: 20181105
  Transmission Date: 20190205
  Serious: Yes (Other)
  Sender: FDA-Public Use
  Company Number: US-SUN PHARMACEUTICAL INDUSTRIES LTD-2018US-190413

PATIENT
  Age: 33 Year
  Sex: Female

DRUGS (3)
  1. CINACALCET. [Suspect]
     Active Substance: CINACALCET
     Indication: HYPERCALCAEMIA
     Dosage: UNK
     Route: 065
  2. PREDNISONE. [Suspect]
     Active Substance: PREDNISONE
     Indication: HYPERCALCAEMIA
     Dosage: UNK
     Route: 065
  3. CALCITONIN [Suspect]
     Active Substance: CALCITONIN
     Indication: HYPERCALCAEMIA
     Dosage: UNK
     Route: 065

REACTIONS (3)
  - Exposure during pregnancy [Recovered/Resolved with Sequelae]
  - Abortion induced [Unknown]
  - Drug ineffective [Unknown]
